FAERS Safety Report 7790143-7 (Version None)
Quarter: 2011Q3

REPORT INFORMATION
  Report Type: 
  Country: None (occurrence: None)
  Receive Date: 20110930
  Receipt Date: 20101109
  Transmission Date: 20111222
  Serious: No
  Sender: FDA-Public Use
  Company Number: US-ASTRAZENECA-2010SE14782

PATIENT
  Age: 25097 Day
  Sex: Female
  Weight: 61.2 kg

DRUGS (6)
  1. PROZAC [Concomitant]
  2. ARIMIDEX [Suspect]
     Dosage: GENERIC
     Route: 048
  3. NEXIUM [Concomitant]
  4. LEVASA [Concomitant]
  5. ARIMIDEX [Suspect]
     Indication: BREAST CANCER
     Route: 048
     Dates: start: 20100315
  6. ZETIA [Concomitant]

REACTIONS (10)
  - CONFUSIONAL STATE [None]
  - ARTHRALGIA [None]
  - NAUSEA [None]
  - ONYCHOCLASIS [None]
  - VISION BLURRED [None]
  - FATIGUE [None]
  - SPEECH DISORDER [None]
  - PAIN IN EXTREMITY [None]
  - CONSTIPATION [None]
  - PRURITUS [None]
